FAERS Safety Report 10425373 (Version 2)
Quarter: 2014Q3

REPORT INFORMATION
  Report Type: Spontaneous
  Country: FR (occurrence: FR)
  Receive Date: 20140902
  Receipt Date: 20140909
  Transmission Date: 20150326
  Serious: Yes (Life-Threatening, Hospitalization)
  Sender: FDA-Public Use
  Company Number: FR-PFIZER INC-2014242091

PATIENT
  Age: 74 Year
  Sex: Female
  Weight: 78 kg

DRUGS (3)
  1. AMLOR [Suspect]
     Active Substance: AMLODIPINE BESYLATE
     Dosage: 100 MG, ONCE (20 TABLETS OF AT 5 MG)
     Route: 048
     Dates: start: 20140312, end: 20140312
  2. TENORMIN [Suspect]
     Active Substance: ATENOLOL
     Dosage: 700 MG, ONCE (7 TABLETS OF 100 MG)
     Route: 048
     Dates: start: 20140312, end: 20140312
  3. ATORVASTATIN CALCIUM. [Suspect]
     Active Substance: ATORVASTATIN CALCIUM
     Dosage: 160 MG, ONCE (8 TABLETS OF 20 MG)
     Route: 048
     Dates: start: 20140312, end: 20140312

REACTIONS (3)
  - Cardiogenic shock [Recovered/Resolved]
  - Toxicity to various agents [Recovered/Resolved]
  - Overdose [Recovered/Resolved]

NARRATIVE: CASE EVENT DATE: 20140312
